FAERS Safety Report 4701882-6 (Version None)
Quarter: 2005Q2

REPORT INFORMATION
  Report Type: 
  Country: None (occurrence: None)
  Receive Date: 20050627
  Receipt Date: 20050613
  Transmission Date: 20051028
  Serious: Yes (Other)
  Sender: FDA-Public Use
  Company Number: 2005BH000277

PATIENT
  Age: 46 Year
  Sex: Female

DRUGS (1)
  1. FUROSEMIDE [Suspect]

REACTIONS (3)
  - ACUTE FEBRILE NEUTROPHILIC DERMATOSIS [None]
  - EPISCLERITIS [None]
  - IRITIS [None]
